FAERS Safety Report 8399290-2 (Version None)
Quarter: 2012Q2

REPORT INFORMATION
  Report Type: 
  Country: None (occurrence: None)
  Receive Date: 20120531
  Receipt Date: 20120522
  Transmission Date: 20120825
  Serious: Yes (Hospitalization)
  Sender: FDA-Public Use
  Company Number: 2012SP001471

PATIENT
  Age: 68 Year
  Sex: Male

DRUGS (3)
  1. BUDESONIDE [Concomitant]
     Indication: CHRONIC OBSTRUCTIVE PULMONARY DISEASE
  2. WARFARIN SODIUM [Concomitant]
     Indication: ANTICOAGULANT THERAPY
  3. BROVANA [Suspect]
     Indication: CHRONIC OBSTRUCTIVE PULMONARY DISEASE
     Route: 055
     Dates: start: 20110101

REACTIONS (3)
  - CORONARY ARTERY OCCLUSION [None]
  - LOCAL SWELLING [None]
  - VIRAL INFECTION [None]
